FAERS Safety Report 10270722 (Version 6)
Quarter: 2017Q3

REPORT INFORMATION
  Report Type: Spontaneous
  Country: CA (occurrence: CA)
  Receive Date: 20140701
  Receipt Date: 20170801
  Transmission Date: 20171127
  Serious: Yes (Life-Threatening, Hospitalization, Other)
  Sender: FDA-Public Use
  Company Number: CA-MERCK-1406CAN013886

PATIENT
  Age: 76 Year
  Sex: Female

DRUGS (2)
  1. SINGULAIR [Suspect]
     Active Substance: MONTELUKAST SODIUM
     Indication: ASTHMA
     Dosage: 10 MG, QD
     Route: 048
  2. EZETROL [Suspect]
     Active Substance: EZETIMIBE
     Indication: HYPERCHOLESTEROLAEMIA
     Dosage: 10 MG, QD
     Route: 048

REACTIONS (11)
  - Aortic valvotomy [Recovered/Resolved]
  - Malaise [Recovered/Resolved]
  - Myalgia [Unknown]
  - Myalgia [Unknown]
  - Endocarditis [Unknown]
  - Influenza [Recovered/Resolved]
  - Aortic valve replacement [Unknown]
  - Nasopharyngitis [Recovering/Resolving]
  - Cardiac valve disease [Recovered/Resolved]
  - Cough [Recovered/Resolved]
  - Coronary artery bypass [Recovered/Resolved]

NARRATIVE: CASE EVENT DATE: 20140414
